FAERS Safety Report 7551640-2 (Version None)
Quarter: 2011Q2

REPORT INFORMATION
  Report Type: 
  Country: None (occurrence: None)
  Receive Date: 20110616
  Receipt Date: 20110610
  Transmission Date: 20111010
  Serious: Yes (Death)
  Sender: FDA-Public Use
  Company Number: US-GILEAD-2011-0040154

PATIENT
  Sex: Female

DRUGS (20)
  1. LETAIRIS [Suspect]
     Indication: PULMONARY HYPERTENSION
     Route: 048
     Dates: start: 20080501, end: 20100513
  2. REVATIO [Concomitant]
  3. LASIX [Concomitant]
  4. PREDNISONE [Concomitant]
  5. NAC 600 [Concomitant]
  6. FERROUS SULFATE TAB [Concomitant]
  7. LETAIRIS [Suspect]
     Indication: INTERSTITIAL LUNG DISEASE
  8. LIPOFEN [Concomitant]
  9. LANOXIN [Concomitant]
  10. PLAVIX [Concomitant]
  11. SPIRIVA [Concomitant]
  12. NOVOLOG PEN [Concomitant]
  13. ALENDRONATE SODIUM [Concomitant]
  14. VITAMIN B-12 [Concomitant]
  15. METOPROLOL [Concomitant]
  16. ASPIRIN [Concomitant]
  17. LETAIRIS [Suspect]
     Indication: PULMONARY EMBOLISM
  18. COZAAR [Concomitant]
  19. VYTORIN [Concomitant]
  20. CENTRUM SILVER [Concomitant]

REACTIONS (2)
  - INTERSTITIAL LUNG DISEASE [None]
  - PULMONARY EMBOLISM [None]
